FAERS Safety Report 19441113 (Version 2)
Quarter: 2021Q4

REPORT INFORMATION
  Report Type: Spontaneous
  Country: CA (occurrence: CA)
  Receive Date: 20210621
  Receipt Date: 20211011
  Transmission Date: 20220303
  Serious: Yes (Other)
  Sender: FDA-Public Use
  Company Number: CA-ALLERGAN-2122507US

PATIENT
  Sex: Female

DRUGS (8)
  1. ACITRETIN [Suspect]
     Active Substance: ACITRETIN
     Indication: Product used for unknown indication
     Route: 065
  2. METHOTREXATE [Suspect]
     Active Substance: METHOTREXATE
     Indication: Psoriasis
     Route: 065
  3. CLOBETASOL [Suspect]
     Active Substance: CLOBETASOL
     Indication: Product used for unknown indication
     Route: 065
  4. CLOBETASOL [Suspect]
     Active Substance: CLOBETASOL
     Indication: Product used for unknown indication
     Route: 065
  5. ACITRETIN [Suspect]
     Active Substance: ACITRETIN
     Indication: Product used for unknown indication
     Route: 065
  6. BETADERM [Concomitant]
     Active Substance: BETAMETHASONE VALERATE
     Route: 065
  7. BETAMETHASONE DIPROPIONATE\CALCIPOTRIENE [Concomitant]
     Active Substance: BETAMETHASONE DIPROPIONATE\CALCIPOTRIENE
     Route: 065
  8. SULFASALAZINE [Concomitant]
     Active Substance: SULFASALAZINE
     Route: 065

REACTIONS (4)
  - Psoriatic arthropathy [Unknown]
  - Liver function test increased [Unknown]
  - Contraindicated product administered [Unknown]
  - Treatment failure [Unknown]
